FAERS Safety Report 12187902 (Version 1)
Quarter: 2016Q1

REPORT INFORMATION
  Report Type: Spontaneous
  Country: BR (occurrence: BR)
  Receive Date: 20160317
  Receipt Date: 20160317
  Transmission Date: 20160526
  Serious: Yes (Other)
  Sender: FDA-Public Use
  Company Number: BR-JNJFOC-20140610772

PATIENT
  Age: 54 Year
  Sex: Female
  Weight: 68 kg

DRUGS (8)
  1. REMICADE [Suspect]
     Active Substance: INFLIXIMAB
     Indication: RHEUMATOID ARTHRITIS
     Route: 042
     Dates: start: 2013
  2. PREDSIM [Concomitant]
     Active Substance: PREDNISOLONE
     Indication: ANTIINFLAMMATORY THERAPY
     Route: 065
  3. REMICADE [Suspect]
     Active Substance: INFLIXIMAB
     Indication: RHEUMATOID ARTHRITIS
     Route: 042
     Dates: start: 20140314
  4. REMICADE [Suspect]
     Active Substance: INFLIXIMAB
     Indication: OSTEOARTHRITIS
     Route: 042
     Dates: start: 2013
  5. REMICADE [Suspect]
     Active Substance: INFLIXIMAB
     Indication: OSTEOARTHRITIS
     Route: 042
     Dates: start: 20130626, end: 20150211
  6. REMICADE [Suspect]
     Active Substance: INFLIXIMAB
     Indication: RHEUMATOID ARTHRITIS
     Route: 042
     Dates: start: 20130626, end: 20150211
  7. REMICADE [Suspect]
     Active Substance: INFLIXIMAB
     Indication: OSTEOARTHRITIS
     Route: 042
     Dates: start: 20140314
  8. ARTRODAR [Concomitant]
     Active Substance: DIACEREIN
     Indication: ANTIINFLAMMATORY THERAPY
     Route: 065

REACTIONS (9)
  - Medication error [Unknown]
  - Pain in extremity [Unknown]
  - Hand deformity [Unknown]
  - Arthralgia [Unknown]
  - Off label use [Unknown]
  - Pneumonia [Recovered/Resolved]
  - Inappropriate schedule of drug administration [Unknown]
  - Product use issue [Unknown]
  - Poor quality drug administered [Unknown]

NARRATIVE: CASE EVENT DATE: 2013
